FAERS Safety Report 9140878 (Version 3)
Quarter: 2013Q2

REPORT INFORMATION
  Report Type: Spontaneous
  Country: US (occurrence: US)
  Receive Date: 20130305
  Receipt Date: 20130507
  Transmission Date: 20140414
  Serious: No
  Sender: FDA-Public Use
  Company Number: US-ASTRAZENECA-2013SE11261

PATIENT
  Age: 49 Year
  Sex: Male
  Weight: 154.2 kg

DRUGS (4)
  1. SYMBICORT PMDI [Suspect]
     Indication: MULTIPLE ALLERGIES
     Dosage: 2 PUFFS, TWO TIMES A DAY
     Route: 055
  2. SYMBICORT PMDI [Suspect]
     Indication: MULTIPLE ALLERGIES
     Dosage: 160/4.5 MCG, 2 PUFFS, TWO TIMES A DAY
     Route: 055
     Dates: start: 201302
  3. ANTIBIOTIC [Suspect]
     Indication: UPPER RESPIRATORY TRACT CONGESTION
     Route: 065
     Dates: start: 201303
  4. CHOLESTEROL MEDICATION [Concomitant]

REACTIONS (7)
  - Abdominal pain upper [Unknown]
  - Diarrhoea [Unknown]
  - Respiratory tract congestion [Unknown]
  - Foreign body aspiration [Unknown]
  - Cough [Unknown]
  - Throat irritation [Unknown]
  - Off label use [Unknown]
